FAERS Safety Report 13913785 (Version 1)
Quarter: 2017Q3

REPORT INFORMATION
  Report Type: Spontaneous
  Country: US (occurrence: US)
  Receive Date: 20170828
  Receipt Date: 20170828
  Transmission Date: 20171127
  Serious: No
  Sender: FDA-Public Use
  Company Number: US-ROCHE-1140535

PATIENT
  Sex: Male
  Weight: 30.8 kg

DRUGS (2)
  1. NUTROPIN AQ [Suspect]
     Active Substance: SOMATROPIN
     Dosage: 0.29 ML
     Route: 058
  2. NUTROPIN AQ [Suspect]
     Active Substance: SOMATROPIN
     Indication: GROWTH HORMONE DEFICIENCY
     Dosage: 0.26 ML
     Route: 058
     Dates: start: 199307

REACTIONS (6)
  - Alopecia areata [Unknown]
  - Blindness [Unknown]
  - Back pain [Unknown]
  - Rhinorrhoea [Unknown]
  - Vitiligo [Unknown]
  - Headache [Unknown]
